FAERS Safety Report 25966144 (Version 2)
Quarter: 2025Q4

REPORT INFORMATION
  Report Type: Spontaneous
  Country: JP (occurrence: JP)
  Receive Date: 20251028
  Receipt Date: 20251111
  Transmission Date: 20260117
  Serious: Yes (Death)
  Sender: RECORDATI
  Company Number: JP-ORPHANEU-2025007519

PATIENT
  Age: 69 Year
  Sex: Female

DRUGS (3)
  1. OSILODROSTAT [Suspect]
     Active Substance: OSILODROSTAT
     Indication: Cushing^s syndrome
     Dosage: UNK
     Route: 065
  2. OSILODROSTAT [Suspect]
     Active Substance: OSILODROSTAT
     Indication: Primary bilateral macronodular adrenal hyperplasia
     Dosage: 12 MG/DAY OVER 18 DAYS
     Route: 065
  3. OSILODROSTAT [Suspect]
     Active Substance: OSILODROSTAT
     Dosage: 12MG, DAILY, BID (VIA TUBE FEEDING)

REACTIONS (5)
  - Pneumocystis jirovecii pneumonia [Fatal]
  - Cardiac failure [Fatal]
  - Respiratory muscle weakness [Fatal]
  - Product use issue [Recovered/Resolved]
  - Disease progression [Recovered/Resolved]
